FAERS Safety Report 7902057-X (Version None)
Quarter: 2011Q4

REPORT INFORMATION
  Report Type: 
  Country: None (occurrence: None)
  Receive Date: 20111108
  Receipt Date: 20111031
  Transmission Date: 20120403
  Serious: Yes (Hospitalization)
  Sender: FDA-Public Use
  Company Number: JP-GLAXOSMITHKLINE-B0757111A

PATIENT
  Sex: Male

DRUGS (6)
  1. REQUIP [Suspect]
     Indication: PARKINSON'S DISEASE
     Route: 048
     Dates: start: 20111012, end: 20111017
  2. LARODOPA [Concomitant]
     Route: 065
  3. SELEGILINE HCL [Concomitant]
     Route: 065
  4. MADOPAR [Concomitant]
     Dosage: 4IUAX PER DAY
     Route: 048
  5. ROCEPHIN [Concomitant]
     Dosage: 2G PER DAY
     Route: 042
     Dates: start: 20111014, end: 20111019
  6. PRAMIPEXOLE DIHYDROCHLORIDE [Concomitant]
     Route: 048
     Dates: start: 20110929, end: 20111011

REACTIONS (10)
  - SOMNOLENCE [None]
  - NEUROLEPTIC MALIGNANT SYNDROME [None]
  - PYREXIA [None]
  - RENAL FAILURE [None]
  - BLOOD UREA INCREASED [None]
  - DYSKINESIA [None]
  - BLOOD CREATINE PHOSPHOKINASE INCREASED [None]
  - C-REACTIVE PROTEIN INCREASED [None]
  - WHITE BLOOD CELL COUNT INCREASED [None]
  - BLOOD CREATININE INCREASED [None]
